FAERS Safety Report 15059761 (Version 3)
Quarter: 2018Q3

REPORT INFORMATION
  Report Type: Spontaneous
  Country: US (occurrence: US)
  Receive Date: 20180625
  Receipt Date: 20180918
  Transmission Date: 20181010
  Serious: No
  Sender: FDA-Public Use
  Company Number: US-SA-2018SA158907

PATIENT
  Age: 63 Year
  Sex: Male

DRUGS (1)
  1. TOUJEO [Suspect]
     Active Substance: INSULIN GLARGINE
     Indication: DIABETES MELLITUS
     Dosage: 20 U, QD
     Route: 065
     Dates: start: 201708

REACTIONS (3)
  - Device issue [Unknown]
  - Blood glucose increased [Unknown]
  - Drug dose omission [Unknown]
